FAERS Safety Report 9414168 (Version 1)
Quarter: 2013Q3

REPORT INFORMATION
  Report Type: Spontaneous
  Country: IT (occurrence: IT)
  Receive Date: 20130723
  Receipt Date: 20130723
  Transmission Date: 20140515
  Serious: Yes (Other)
  Sender: FDA-Public Use
  Company Number: IT-BRISTOL-MYERS SQUIBB COMPANY-19113125

PATIENT
  Age: 57 Year
  Sex: Male

DRUGS (3)
  1. ABATACEPT [Suspect]
     Dosage: WITHOUT METHOTREXATE.
     Route: 042
  2. METHYLPREDNISOLONE [Suspect]
  3. RAMIPRIL [Concomitant]

REACTIONS (4)
  - Inguinal hernia [Unknown]
  - Tooth abscess [Unknown]
  - Gastroenteritis [Unknown]
  - Bronchitis [Unknown]
